FAERS Safety Report 8725462 (Version 3)
Quarter: 2012Q4

REPORT INFORMATION
  Report Type: 
  Country: US (occurrence: US)
  Receive Date: 20120815
  Receipt Date: 20120914
  Transmission Date: 20130627
  Serious: No
  Sender: FDA-Public Use
  Company Number: US-ASTRAZENECA-2012SE55818

PATIENT
  Age: 37 Year
  Sex: Male

DRUGS (1)
  1. SEROQUEL XR [Suspect]
     Route: 048

REACTIONS (6)
  - Malaise [Unknown]
  - Insomnia [Unknown]
  - Nervousness [Unknown]
  - Hyperhidrosis [Unknown]
  - Adverse event [Unknown]
  - Drug dose omission [Unknown]
